FAERS Safety Report 18422707 (Version 3)
Quarter: 2024Q3

REPORT INFORMATION
  Report Type: Spontaneous
  Country: US (occurrence: US)
  Receive Date: 20201023
  Receipt Date: 20240906
  Transmission Date: 20241016
  Serious: Yes (Other)
  Sender: PFIZER
  Company Number: US-PFIZER INC-2020410246

PATIENT
  Age: 65 Year
  Sex: Female
  Weight: 81.65 kg

DRUGS (3)
  1. XELJANZ XR [Suspect]
     Active Substance: TOFACITINIB CITRATE
     Indication: Arthritis
     Dosage: 11 MG, 1X/DAY, [IN THE MORNING ]
  2. PREDNISONE [Concomitant]
     Active Substance: PREDNISONE
     Dosage: 10 MG, DAILY
     Dates: start: 1990
  3. PREDNISONE [Concomitant]
     Active Substance: PREDNISONE
     Dosage: DECREASE THE DOSE

REACTIONS (3)
  - Renal failure [Recovering/Resolving]
  - Renal disorder [Recovering/Resolving]
  - Drug intolerance [Recovering/Resolving]
